FAERS Safety Report 19476630 (Version 1)
Quarter: 2021Q2

REPORT INFORMATION
  Report Type: Spontaneous
  Country: GB (occurrence: GB)
  Receive Date: 20210630
  Receipt Date: 20210630
  Transmission Date: 20210717
  Serious: Yes (Other)
  Sender: FDA-Public Use
  Company Number: GB-AMGEN-GBRSP2021096602

PATIENT
  Age: 64 Year
  Sex: Male
  Weight: 82 kg

DRUGS (1)
  1. NPLATE [Suspect]
     Active Substance: ROMIPLOSTIM
     Indication: IMMUNE THROMBOCYTOPENIA
     Dosage: 750 MICROGRAM
     Route: 065
     Dates: start: 2021

REACTIONS (4)
  - Therapy non-responder [Unknown]
  - Mouth haemorrhage [Unknown]
  - Haemorrhage [Unknown]
  - Oral contusion [Unknown]

NARRATIVE: CASE EVENT DATE: 2021
